FAERS Safety Report 12902623 (Version 4)
Quarter: 2017Q1

REPORT INFORMATION
  Report Type: Spontaneous
  Country: US (occurrence: US)
  Receive Date: 20161102
  Receipt Date: 20170215
  Transmission Date: 20170428
  Serious: Yes (Hospitalization)
  Sender: FDA-Public Use
  Company Number: US-GLAXOSMITHKLINE-US2016160754

PATIENT
  Sex: Male

DRUGS (3)
  1. VENTOLIN HFA [Suspect]
     Active Substance: ALBUTEROL SULFATE
     Indication: PRODUCT USED FOR UNKNOWN INDICATION
     Dosage: 2 PUFF(S), UNK
  2. ALBUTEROL. [Suspect]
     Active Substance: ALBUTEROL
     Indication: ASTHMA
     Dosage: UNK
  3. QVAR [Suspect]
     Active Substance: BECLOMETHASONE DIPROPIONATE
     Indication: ASTHMA
     Dosage: UNK
     Dates: start: 20151014

REACTIONS (10)
  - Product formulation issue [Unknown]
  - Dyspnoea [Unknown]
  - Heart rate increased [Unknown]
  - Emotional distress [Unknown]
  - Drug ineffective [Unknown]
  - Weight increased [Unknown]
  - Delusion [Unknown]
  - Asthma [Recovering/Resolving]
  - Hypertension [Unknown]
  - Circumstance or information capable of leading to medication error [Unknown]
